FAERS Safety Report 9772306 (Version 1)
Quarter: 2013Q4

REPORT INFORMATION
  Report Type: Spontaneous
  Country: AU (occurrence: AU)
  Receive Date: 20131219
  Receipt Date: 20131219
  Transmission Date: 20140711
  Serious: Yes (Other)
  Sender: FDA-Public Use
  Company Number: PHHY2013AU148563

PATIENT
  Sex: Male

DRUGS (2)
  1. VASTEN [Suspect]
     Dosage: UNK UKN, UNK
  2. AVANDIA [Suspect]
     Dosage: UNK UKN, UNK

REACTIONS (5)
  - Myocardial infarction [Unknown]
  - Abasia [Unknown]
  - Pain in extremity [Unknown]
  - Feeling abnormal [Unknown]
  - Muscular weakness [Unknown]
